FAERS Safety Report 7478032-9 (Version None)
Quarter: 2011Q2

REPORT INFORMATION
  Report Type: 
  Country: None (occurrence: None)
  Receive Date: 20110513
  Receipt Date: 20110502
  Transmission Date: 20111010
  Serious: Yes (Death)
  Sender: FDA-Public Use
  Company Number: NG-SANOFI-AVENTIS-2011SA029206

PATIENT

DRUGS (1)
  1. CHLOROQUINE PHOSPHATE [Suspect]
     Indication: MALARIA
     Route: 065

REACTIONS (2)
  - SYNCOPE [None]
  - CARDIAC ARREST [None]
